FAERS Safety Report 18437310 (Version 5)
Quarter: 2021Q3

REPORT INFORMATION
  Report Type: Report from Study
  Country: US (occurrence: US)
  Receive Date: 20201028
  Receipt Date: 20210810
  Transmission Date: 20211014
  Serious: Yes (Hospitalization, Other)
  Sender: FDA-Public Use
  Company Number: US-SHIRE-US202007995

PATIENT
  Age: 65 Year
  Sex: Female

DRUGS (2)
  1. CUVITRU [Suspect]
     Active Substance: HUMAN IMMUNOGLOBULIN G
     Indication: PRIMARY IMMUNODEFICIENCY SYNDROME
  2. CUVITRU [Suspect]
     Active Substance: HUMAN IMMUNOGLOBULIN G
     Indication: IMMUNODEFICIENCY COMMON VARIABLE
     Dosage: UNK
     Route: 065

REACTIONS (24)
  - Asthenia [Unknown]
  - Memory impairment [Unknown]
  - Intervertebral disc protrusion [Unknown]
  - Aspergillus infection [Unknown]
  - Infection [Unknown]
  - Nerve block [Unknown]
  - Degenerative bone disease [Unknown]
  - Cataract [Unknown]
  - Skin striae [Unknown]
  - Abdominal discomfort [Unknown]
  - Spinal compression fracture [Unknown]
  - B-lymphocyte abnormalities [Unknown]
  - Unevaluable event [Unknown]
  - Osteoporosis [Unknown]
  - Back disorder [Unknown]
  - Gastrointestinal disorder [Unknown]
  - Breast cyst [Recovered/Resolved]
  - Irritable bowel syndrome [Unknown]
  - Inability to afford medication [Unknown]
  - Pneumonia [Unknown]
  - Asthma [Unknown]
  - Osteoarthritis [Unknown]
  - Melanocytic naevus [Recovered/Resolved]
  - Diarrhoea [Unknown]

NARRATIVE: CASE EVENT DATE: 2013
